FAERS Safety Report 14491728 (Version 3)
Quarter: 2018Q1

REPORT INFORMATION
  Report Type: Report from Study
  Country: US (occurrence: US)
  Receive Date: 20180206
  Receipt Date: 20180307
  Transmission Date: 20180509
  Serious: Yes (Hospitalization, Other)
  Sender: FDA-Public Use
  Company Number: US-GILEAD-2018-0318642

PATIENT
  Age: 72 Year
  Sex: Female
  Weight: 102.4 kg

DRUGS (18)
  1. DIGOXIN. [Concomitant]
     Active Substance: DIGOXIN
  2. LISPRO INSULIN [Concomitant]
     Active Substance: INSULIN LISPRO
  3. IPRATROPIUM BROMIDE AND ALBUTEROL SULFATE [Concomitant]
     Active Substance: ALBUTEROL SULFATE\IPRATROPIUM BROMIDE
  4. BUDESONIDE. [Concomitant]
     Active Substance: BUDESONIDE
  5. K-DUR [Concomitant]
     Active Substance: POTASSIUM CHLORIDE
  6. SIMVASTATIN. [Concomitant]
     Active Substance: SIMVASTATIN
  7. GUAIFENESIN DM [Concomitant]
     Active Substance: DEXTROMETHORPHAN\DEXTROMETHORPHAN HYDROBROMIDE\GUAIFENESIN
  8. FUROSEMIDE. [Concomitant]
     Active Substance: FUROSEMIDE
  9. FLUTICASONE. [Concomitant]
     Active Substance: FLUTICASONE
  10. CENTRUM SILVER                     /02363801/ [Concomitant]
     Active Substance: MINERALS\VITAMINS
  11. AMBRISENTAN [Suspect]
     Active Substance: AMBRISENTAN
     Indication: PRODUCT USED FOR UNKNOWN INDICATION
     Dosage: 5 MG, UNK
     Route: 065
     Dates: start: 20100306, end: 2018
  12. RANEXA [Concomitant]
     Active Substance: RANOLAZINE
     Indication: PRODUCT USED FOR UNKNOWN INDICATION
     Dosage: 500 MG, EVERY 12 HOURS
     Route: 048
  13. AMIODARONE [Concomitant]
     Active Substance: AMIODARONE
  14. CALCIUM CITRATE + D [Concomitant]
  15. ELIQUIS [Concomitant]
     Active Substance: APIXABAN
  16. PREDNISONE. [Concomitant]
     Active Substance: PREDNISONE
  17. MILK OF MAGNESIA [Concomitant]
     Active Substance: MAGNESIUM HYDROXIDE
  18. OCEAN SALINE NASAL SPRAY [Concomitant]
     Active Substance: SODIUM CHLORIDE

REACTIONS (6)
  - Fluid retention [Unknown]
  - Cardiac failure congestive [Unknown]
  - Pneumonia [Unknown]
  - Atrial fibrillation [Recovered/Resolved]
  - Pulmonary fibrosis [Recovered/Resolved]
  - Chronic obstructive pulmonary disease [Recovered/Resolved]

NARRATIVE: CASE EVENT DATE: 20180123
